FAERS Safety Report 21392627 (Version 1)
Quarter: 2022Q3

REPORT INFORMATION
  Report Type: Spontaneous
  Country: None (occurrence: SE)
  Receive Date: 20220929
  Receipt Date: 20220929
  Transmission Date: 20221026
  Serious: Yes (Hospitalization, Other)
  Sender: FDA-Public Use
  Company Number: SE-B.Braun Medical Inc.-2133311

PATIENT
  Age: 34 Year
  Sex: Male

DRUGS (2)
  1. ACETAMINOPHEN [Suspect]
     Active Substance: ACETAMINOPHEN
  2. IBUPROFEN [Suspect]
     Active Substance: IBUPROFEN

REACTIONS (5)
  - Intentional self-injury [Unknown]
  - Transaminases increased [Unknown]
  - Intentional overdose [Unknown]
  - Toxicity to various agents [Unknown]
  - Aggression [Unknown]
